FAERS Safety Report 9019603 (Version 1)
Quarter: 2013Q1

REPORT INFORMATION
  Report Type: Spontaneous
  Country: US (occurrence: US)
  Receive Date: 20130118
  Receipt Date: 20130118
  Transmission Date: 20140127
  Serious: Yes (Hospitalization)
  Sender: FDA-Public Use
  Company Number: US-SANOFI-AVENTIS-2012SA035165

PATIENT
  Age: 66 Year
  Sex: Female

DRUGS (3)
  1. FUROSEMIDE [Suspect]
  2. NICODERM CQ [Suspect]
     Indication: EX-TOBACCO USER
     Dates: start: 20120411
  3. NICODERM CQ [Suspect]
     Indication: EX-TOBACCO USER

REACTIONS (2)
  - Dehydration [Unknown]
  - Application site reaction [Unknown]
